FAERS Safety Report 6340304-9 (Version None)
Quarter: 2009Q3

REPORT INFORMATION
  Report Type: 
  Country: None (occurrence: None)
  Receive Date: 20090902
  Receipt Date: 20090820
  Transmission Date: 20100115
  Serious: Yes (Other)
  Sender: FDA-Public Use
  Company Number: 2009AP003399

PATIENT
  Sex: Female

DRUGS (11)
  1. TOPIRAMATE [Suspect]
     Indication: BACK PAIN
     Dosage: 100 MG; BID, 200 MG;
  2. TOPIRAMATE [Suspect]
     Indication: STRESS CARDIOMYOPATHY
     Dosage: 100 MG; BID, 200 MG;
  3. CARBAMAZEPINE [Suspect]
     Dosage: 400 MG; BID, 800 MG;
     Dates: start: 20060101
  4. TEGRETOL-XR [Suspect]
     Dosage: 200 MG; QD PO, 400 MG;
     Route: 048
  5. ATENOLOL [Concomitant]
  6. LAMOTRIGINE [Concomitant]
  7. LISINOPRIL [Concomitant]
  8. AMITRIPTYLINE HYDROCHLORIDE [Concomitant]
  9. GABAPENTIN [Concomitant]
  10. LIDOCAINE [Concomitant]
  11. PREGABALIN [Concomitant]

REACTIONS (10)
  - APHASIA [None]
  - DEEP VEIN THROMBOSIS [None]
  - DYSPNOEA [None]
  - EYE PAIN [None]
  - MOOD SWINGS [None]
  - NAUSEA [None]
  - RASH [None]
  - SPEECH DISORDER [None]
  - SUNCT SYNDROME [None]
  - SWELLING FACE [None]
